FAERS Safety Report 7069736-0 (Version None)
Quarter: 2010Q4

REPORT INFORMATION
  Report Type: 
  Country: None (occurrence: None)
  Receive Date: 20101028
  Receipt Date: 20100511
  Transmission Date: 20110411
  Serious: No
  Sender: FDA-Public Use
  Company Number: US-WYE-H15189310

PATIENT
  Sex: Female
  Weight: 63.56 kg

DRUGS (2)
  1. EFFEXOR [Suspect]
     Indication: OBSESSIVE-COMPULSIVE DISORDER
     Dates: start: 20040101
  2. EFFEXOR [Suspect]
     Dosage: RESUMED ON AN UNKNOWN DATE; THEN TAPERED ON UNKNOWN DATES IN ATTEMPTS TO DISCONTINUE

REACTIONS (2)
  - ANGER [None]
  - IRRITABILITY [None]
